FAERS Safety Report 17342686 (Version 1)
Quarter: 2020Q1

REPORT INFORMATION
  Report Type: Spontaneous
  Country: US (occurrence: US)
  Receive Date: 20200129
  Receipt Date: 20200129
  Transmission Date: 20200409
  Serious: No
  Sender: FDA-Public Use
  Company Number: US-ALLERGAN-1932277US

PATIENT
  Sex: Male

DRUGS (5)
  1. BOTOX COSMETIC [Suspect]
     Active Substance: ONABOTULINUMTOXINA
     Dosage: EACH TAIL 1.5 UNITS, SINGLE
     Dates: start: 201905, end: 201905
  2. BOTOX COSMETIC [Suspect]
     Active Substance: ONABOTULINUMTOXINA
     Indication: SKIN WRINKLING
     Dosage: 36 UNITS, SINGLE
     Dates: start: 201905, end: 201905
  3. BOTOX COSMETIC [Suspect]
     Active Substance: ONABOTULINUMTOXINA
     Indication: SKIN WRINKLING
     Dosage: EACH SIDE 4 UNITS, SINGLE
     Dates: start: 201905, end: 201905
  4. BOTOX COSMETIC [Suspect]
     Active Substance: ONABOTULINUMTOXINA
     Indication: SKIN WRINKLING
     Dosage: EACH SIDE 4 UNITS, SINGLE
     Dates: start: 201905, end: 201905
  5. BOTOX COSMETIC [Suspect]
     Active Substance: ONABOTULINUMTOXINA
     Dosage: EACH TAIL 1.5 UNITS, SINGLE
     Dates: start: 201905, end: 201905

REACTIONS (5)
  - Off label use [Unknown]
  - Poor quality product administered [Unknown]
  - Drug ineffective [Unknown]
  - Product preparation error [Unknown]
  - Product quality issue [Unknown]

NARRATIVE: CASE EVENT DATE: 2019
